FAERS Safety Report 5129883-7 (Version None)
Quarter: 2006Q4

REPORT INFORMATION
  Report Type: 
  Country: None (occurrence: None)
  Receive Date: 20061013
  Receipt Date: 20060927
  Transmission Date: 20070319
  Serious: Yes (Hospitalization)
  Sender: FDA-Public Use
  Company Number: FR-2006-017392

PATIENT
  Age: 47 Year
  Sex: Female

DRUGS (1)
  1. BETASERON (BETAFERON (SH Y 579E)) (INTERFERON BETA - 1B)INJECTION, 250 [Suspect]
     Indication: MULTIPLE SCLEROSIS
     Dosage: 8 MIU, EVERY 2D, SUBCUTANEOUS
     Route: 058
     Dates: start: 20041225

REACTIONS (4)
  - HAEMATOCRIT DECREASED [None]
  - LYMPHOCYTE COUNT DECREASED [None]
  - PROTEIN TOTAL INCREASED [None]
  - THYROID CANCER [None]
